FAERS Safety Report 7217407-X (Version None)
Quarter: 2011Q1

REPORT INFORMATION
  Report Type: 
  Country: None (occurrence: None)
  Receive Date: 20110110
  Receipt Date: 20101229
  Transmission Date: 20110831
  Serious: Yes (Other)
  Sender: FDA-Public Use
  Company Number: PHHY2010BR89092

PATIENT
  Sex: Female

DRUGS (2)
  1. DIOVAN HCT [Suspect]
     Dosage: 80/12.5 MG, UNK
  2. DIOVAN HCT [Suspect]
     Dosage: 320/12.5 MG, UNK

REACTIONS (3)
  - HYPERTENSION [None]
  - MALAISE [None]
  - VIITH NERVE PARALYSIS [None]
